FAERS Safety Report 25014306 (Version 1)
Quarter: 2025Q1

REPORT INFORMATION
  Report Type: Spontaneous
  Country: US (occurrence: US)
  Receive Date: 20250226
  Receipt Date: 20250226
  Transmission Date: 20250408
  Serious: No
  Sender: BAYER HEALTHCARE PHARMACEUTICALS INC.
  Company Number: US-BAYER-2025A026918

PATIENT
  Age: 19 Year
  Sex: Female

DRUGS (13)
  1. MOXIFLOXACIN [Suspect]
     Active Substance: MOXIFLOXACIN
     Indication: Tuberculosis
     Route: 048
  2. ISONIAZID [Concomitant]
     Active Substance: ISONIAZID
  3. ISONIAZID [Concomitant]
     Active Substance: ISONIAZID
  4. ISONIAZID [Concomitant]
     Active Substance: ISONIAZID
  5. PYRAZINAMIDE [Concomitant]
     Active Substance: PYRAZINAMIDE
  6. PYRAZINAMIDE [Concomitant]
     Active Substance: PYRAZINAMIDE
  7. PYRAZINAMIDE [Concomitant]
     Active Substance: PYRAZINAMIDE
  8. CAPREOMYCIN [Concomitant]
     Active Substance: CAPREOMYCIN
  9. CAPREOMYCIN [Concomitant]
     Active Substance: CAPREOMYCIN
  10. RIFAMPIN [Concomitant]
     Active Substance: RIFAMPIN
  11. LEVOFLOXACIN [Concomitant]
     Active Substance: LEVOFLOXACIN
  12. ETHAMBUTOL [Concomitant]
     Active Substance: ETHAMBUTOL HYDROCHLORIDE
  13. ETHAMBUTOL [Concomitant]
     Active Substance: ETHAMBUTOL HYDROCHLORIDE

REACTIONS (2)
  - Product use in unapproved indication [None]
  - Product prescribing issue [None]
